FAERS Safety Report 20579607 (Version 1)
Quarter: 2022Q1

REPORT INFORMATION
  Report Type: Spontaneous
  Country: US (occurrence: US)
  Receive Date: 20220310
  Receipt Date: 20220310
  Transmission Date: 20220423
  Serious: Yes (Other)
  Sender: FDA-Public Use
  Company Number: US-009507513-2203USA001584

PATIENT
  Sex: Female

DRUGS (1)
  1. KEYTRUDA [Suspect]
     Active Substance: PEMBROLIZUMAB
     Indication: Neoplasm malignant
     Dosage: 200 MILLIGRAM, Q3W
     Route: 042
     Dates: start: 20210804, end: 20220209

REACTIONS (5)
  - Malignant neoplasm progression [Not Recovered/Not Resolved]
  - Dysgeusia [Unknown]
  - Myalgia [Unknown]
  - Nausea [Unknown]
  - Vomiting [Unknown]
